FAERS Safety Report 9759443 (Version 1)
Quarter: 2013Q4

REPORT INFORMATION
  Report Type: Spontaneous
  Country: GB (occurrence: GB)
  Receive Date: 20131216
  Receipt Date: 20131216
  Transmission Date: 20140711
  Serious: Yes (Other)
  Sender: FDA-Public Use
  Company Number: GB-ABBVIE-13P-167-1178171-00

PATIENT
  Age: 41 Year
  Sex: Female
  Weight: 65 kg

DRUGS (2)
  1. HUMIRA [Suspect]
     Indication: PSORIASIS
     Dosage: START PERIOD: 557 DAYS - AE OCCURRED 557 DAYS AFTER PATIENT COMMENCED ON HUMIRA
     Route: 058
     Dates: start: 20110926, end: 20130408
  2. EPILIM [Concomitant]
     Indication: PRODUCT USED FOR UNKNOWN INDICATION

REACTIONS (3)
  - Paraesthesia [Recovered/Resolved]
  - Myelitis transverse [Recovered/Resolved]
  - Demyelination [Recovered/Resolved]
